FAERS Safety Report 6281313-8 (Version None)
Quarter: 2009Q3

REPORT INFORMATION
  Report Type: 
  Country: None (occurrence: None)
  Receive Date: 20090724
  Receipt Date: 20090417
  Transmission Date: 20100115
  Serious: Yes (Hospitalization)
  Sender: FDA-Public Use
  Company Number: A0780400A

PATIENT
  Age: 71 Year
  Sex: Female

DRUGS (5)
  1. AVANDIA [Suspect]
     Indication: DIABETES MELLITUS
     Dosage: 4MG PER DAY
     Route: 048
     Dates: start: 19990101, end: 20040601
  2. ATENOLOL [Concomitant]
  3. PROMETHAZINE [Concomitant]
  4. NADOLOL [Concomitant]
  5. CARDIZEM [Concomitant]

REACTIONS (1)
  - CARDIAC FAILURE CONGESTIVE [None]
